FAERS Safety Report 17495881 (Version 2)
Quarter: 2020Q2

REPORT INFORMATION
  Report Type: Report from Study
  Country: US (occurrence: US)
  Receive Date: 20200303
  Receipt Date: 20200408
  Transmission Date: 20200713
  Serious: No
  Sender: FDA-Public Use
  Company Number: NVSC2020US060593

PATIENT
  Sex: Female

DRUGS (1)
  1. MAYZENT [Suspect]
     Active Substance: SIPONIMOD
     Indication: PRODUCT USED FOR UNKNOWN INDICATION
     Dosage: UNK
     Route: 065

REACTIONS (7)
  - Fall [Unknown]
  - Eye swelling [Unknown]
  - Pruritus [Unknown]
  - Eye infection [Unknown]
  - Musculoskeletal discomfort [Unknown]
  - Vision blurred [Unknown]
  - Limb discomfort [Unknown]
